FAERS Safety Report 4783127-4 (Version None)
Quarter: 2005Q3

REPORT INFORMATION
  Report Type: 
  Country: None (occurrence: None)
  Receive Date: 20050928
  Receipt Date: 20050928
  Transmission Date: 20060218
  Serious: Yes (Other)
  Sender: FDA-Public Use
  Company Number: None

PATIENT
  Age: 66 Year
  Sex: Female

DRUGS (2)
  1. LIPITOR [Suspect]
     Indication: GLUCOSE TOLERANCE IMPAIRED
     Dosage: 1 DAILY
     Dates: start: 20041006
  2. LESCOL [Suspect]
     Dosage: 1 DAILY
     Dates: start: 20050107

REACTIONS (21)
  - ARTHRALGIA [None]
  - BURNING SENSATION [None]
  - CHEST PAIN [None]
  - DIARRHOEA [None]
  - DYSPEPSIA [None]
  - DYSPHONIA [None]
  - FEELING ABNORMAL [None]
  - GINGIVAL ATROPHY [None]
  - HAEMORRHAGIC DIATHESIS [None]
  - INSOMNIA [None]
  - MUSCULOSKELETAL STIFFNESS [None]
  - MYALGIA [None]
  - PHARYNGOLARYNGEAL PAIN [None]
  - PRURITUS [None]
  - PRURITUS ANI [None]
  - PULMONARY CONGESTION [None]
  - PYREXIA [None]
  - RASH [None]
  - RASH PAPULAR [None]
  - THROAT IRRITATION [None]
  - TOOTH DISORDER [None]
